FAERS Safety Report 8977137 (Version 2)
Quarter: 2013Q2

REPORT INFORMATION
  Report Type: Report from Study
  Country: FR (occurrence: FR)
  Receive Date: 20121219
  Receipt Date: 20130422
  Transmission Date: 20140414
  Serious: Yes (Hospitalization)
  Sender: FDA-Public Use
  Company Number: PHHY2012FR115737

PATIENT
  Age: 72 Year
  Sex: Female

DRUGS (4)
  1. ACLASTA [Suspect]
     Indication: OSTEOPOROTIC FRACTURE
     Dosage: UN
     Route: 042
     Dates: start: 201111
  2. COVERSYL//PERINDOPRIL ARGININE [Concomitant]
     Dosage: UNK, QD
     Dates: start: 1990, end: 2012
  3. OLMETEC [Concomitant]
     Dosage: UNK
     Dates: start: 201207
  4. ADALATE [Concomitant]
     Dosage: UNK
     Dates: start: 2012, end: 201211

REACTIONS (3)
  - Renal cancer [Not Recovered/Not Resolved]
  - Bladder cancer [Not Recovered/Not Resolved]
  - Urethral cancer [Not Recovered/Not Resolved]
